FAERS Safety Report 23915590 (Version 7)
Quarter: 2025Q2

REPORT INFORMATION
  Report Type: Spontaneous
  Country: CA (occurrence: CA)
  Receive Date: 20240529
  Receipt Date: 20250523
  Transmission Date: 20250717
  Serious: Yes (Death, Life-Threatening, Hospitalization, Disabling, Other)
  Sender: MYLAN
  Company Number: CA-MYLANLABS-2024M1047036

PATIENT
  Age: 80 Year
  Sex: Male
  Weight: 68 kg

DRUGS (496)
  1. NITROGLYCERIN [Suspect]
     Active Substance: NITROGLYCERIN
     Indication: Product used for unknown indication
  2. GABAPENTIN [Suspect]
     Active Substance: GABAPENTIN
     Indication: Neuralgia
     Dosage: 100 MILLIGRAM, QD
  3. GABAPENTIN [Suspect]
     Active Substance: GABAPENTIN
     Indication: Bacterial infection
  4. GABAPENTIN [Suspect]
     Active Substance: GABAPENTIN
     Dosage: 100 MILLIGRAM, QD
  5. GABAPENTIN [Suspect]
     Active Substance: GABAPENTIN
     Dosage: 100 MILLIGRAM, QD
  6. GABAPENTIN [Suspect]
     Active Substance: GABAPENTIN
     Dosage: 100 MILLIGRAM, QD
  7. GABAPENTIN [Suspect]
     Active Substance: GABAPENTIN
     Dosage: UNK UNK, QD (1 EVERY 1 DAY)
  8. GABAPENTIN [Suspect]
     Active Substance: GABAPENTIN
  9. GABAPENTIN [Suspect]
     Active Substance: GABAPENTIN
     Dosage: 100 MILLIGRAM, QD (AT BED TIME, EVERY 2H)
     Dates: start: 20200527
  10. GABAPENTIN [Suspect]
     Active Substance: GABAPENTIN
  11. GABAPENTIN [Suspect]
     Active Substance: GABAPENTIN
     Dosage: 100 MILIGRAM, QD
  12. GABAPENTIN [Suspect]
     Active Substance: GABAPENTIN
     Dosage: 10 MILIGRAM, QD
  13. AMLODIPINE BESYLATE [Suspect]
     Active Substance: AMLODIPINE BESYLATE
     Indication: Product used for unknown indication
  14. AMLODIPINE BESYLATE [Suspect]
     Active Substance: AMLODIPINE BESYLATE
     Dosage: UNK, QD
  15. AMLODIPINE BESYLATE [Suspect]
     Active Substance: AMLODIPINE BESYLATE
     Dosage: 150 MILLIGRAM, QD
  16. AMLODIPINE BESYLATE [Suspect]
     Active Substance: AMLODIPINE BESYLATE
     Dosage: 150 MILLIGRAM, QD
  17. FLUTICASONE PROPIONATE\SALMETEROL XINAFOATE [Suspect]
     Active Substance: FLUTICASONE PROPIONATE\SALMETEROL XINAFOATE
     Indication: Product used for unknown indication
  18. ASCORBIC ACID [Suspect]
     Active Substance: ASCORBIC ACID
     Indication: Product used for unknown indication
  19. BUDESONIDE [Suspect]
     Active Substance: BUDESONIDE
     Indication: Product used for unknown indication
  20. VITAMIN C [Suspect]
     Active Substance: ASCORBIC ACID
     Indication: Constipation
  21. VITAMIN C [Suspect]
     Active Substance: ASCORBIC ACID
     Indication: Vitamin supplementation
     Dosage: 17 GRAM, QD (1 EVERY 1 DAYS)
  22. VITAMIN C [Suspect]
     Active Substance: ASCORBIC ACID
     Dosage: 170 GRAM, QD
  23. SIMVASTATIN [Suspect]
     Active Substance: SIMVASTATIN
     Indication: Vitamin supplementation
     Dosage: 40 MILLIGRAM, QD (DAILY)
  24. SIMVASTATIN [Suspect]
     Active Substance: SIMVASTATIN
     Indication: Blood cholesterol increased
  25. SIMVASTATIN [Suspect]
     Active Substance: SIMVASTATIN
     Dosage: 40 MILLIGRAM QD (AT BED TIME)
     Dates: start: 20200527
  26. PYRIDOXINE [Suspect]
     Active Substance: PYRIDOXINE
     Indication: Analgesic therapy
  27. PYRIDOXINE [Suspect]
     Active Substance: PYRIDOXINE
     Indication: Constipation
  28. PYRIDOXINE [Suspect]
     Active Substance: PYRIDOXINE
     Indication: Vitamin supplementation
  29. ALLOPURINOL [Suspect]
     Active Substance: ALLOPURINOL
     Indication: Blood uric acid increased
     Dosage: 100 MILLIGRAM, QD
  30. ALLOPURINOL [Suspect]
     Active Substance: ALLOPURINOL
     Dosage: 1 DOSAGE FORM, QD (1 DOSAGE FORM, QD,ORAL USE)
  31. ALLOPURINOL [Suspect]
     Active Substance: ALLOPURINOL
     Dosage: 100 MILLIGRAM, QD (ORAL USE)
  32. ALLOPURINOL [Suspect]
     Active Substance: ALLOPURINOL
     Dosage: 1 DOSAGE FORM, QD (1 DOSAGE FORM, QD),ORAL USE)
  33. ALLOPURINOL [Suspect]
     Active Substance: ALLOPURINOL
  34. ALLOPURINOL [Suspect]
     Active Substance: ALLOPURINOL
     Dosage: 1 DOSAGE FORM, QD (ORAL USE)
  35. ALLOPURINOL [Suspect]
     Active Substance: ALLOPURINOL
  36. ALLOPURINOL [Suspect]
     Active Substance: ALLOPURINOL
     Dosage: 100 MICROGRAM, QD
  37. ALLOPURINOL [Suspect]
     Active Substance: ALLOPURINOL
  38. ALLOPURINOL [Suspect]
     Active Substance: ALLOPURINOL
     Dosage: 100 MILLIGRAM, QD (MORNING)
     Dates: start: 20200527
  39. ALLOPURINOL [Suspect]
     Active Substance: ALLOPURINOL
     Dosage: 1 DOSAGE FORM, QD
  40. ALLOPURINOL [Suspect]
     Active Substance: ALLOPURINOL
     Dosage: 1 DOSAGE FORM
  41. ALLOPURINOL [Suspect]
     Active Substance: ALLOPURINOL
     Dosage: 100 MILLIGRAM, QD (MORNING)
     Dates: start: 20200527
  42. ALLOPURINOL [Suspect]
     Active Substance: ALLOPURINOL
     Dosage: 1 DOSAGE FORM, QD
  43. ALLOPURINOL [Suspect]
     Active Substance: ALLOPURINOL
     Dosage: 100 MILLIGRAM
  44. ALLOPURINOL [Suspect]
     Active Substance: ALLOPURINOL
     Dosage: 1 DOSAGE FORM, QD
  45. WARFARIN [Suspect]
     Active Substance: WARFARIN
     Indication: Thrombosis
     Dosage: 2 MILLIGRAM, QD
  46. WARFARIN [Suspect]
     Active Substance: WARFARIN
     Dosage: 2 MILLILITER, QD
  47. WARFARIN [Suspect]
     Active Substance: WARFARIN
     Dosage: 2 GRAM, QD
  48. WARFARIN [Suspect]
     Active Substance: WARFARIN
  49. WARFARIN [Suspect]
     Active Substance: WARFARIN
     Dosage: 2 MILLILITER, QD
  50. ACETAMINOPHEN [Suspect]
     Active Substance: ACETAMINOPHEN
     Indication: Analgesic therapy
     Dosage: 650 MILLIGRAM, QD
  51. ACETAMINOPHEN [Suspect]
     Active Substance: ACETAMINOPHEN
     Dosage: 650 MG, QD
  52. ACETAMINOPHEN [Suspect]
     Active Substance: ACETAMINOPHEN
     Dosage: 650 MG, QD
  53. ACETAMINOPHEN [Suspect]
     Active Substance: ACETAMINOPHEN
     Dosage: 650 MG, QD
  54. ACETAMINOPHEN [Suspect]
     Active Substance: ACETAMINOPHEN
     Dosage: 5 MG, QD
  55. ACETAMINOPHEN [Suspect]
     Active Substance: ACETAMINOPHEN
     Dosage: 650 MG, QD
  56. ACETAMINOPHEN [Suspect]
     Active Substance: ACETAMINOPHEN
     Indication: Analgesic therapy
     Dosage: 650 MILLIGRAM, QD
  57. ACETAMINOPHEN [Suspect]
     Active Substance: ACETAMINOPHEN
  58. ACETAMINOPHEN [Suspect]
     Active Substance: ACETAMINOPHEN
  59. ACETAMINOPHEN [Suspect]
     Active Substance: ACETAMINOPHEN
     Dosage: 650 MILLIGRAM, QD
  60. ACETAMINOPHEN [Suspect]
     Active Substance: ACETAMINOPHEN
     Dosage: 0.5 MILLILITER, QD
  61. ACETAMINOPHEN [Suspect]
     Active Substance: ACETAMINOPHEN
     Dosage: 5 MILLIGRAM, QD (1 EVERY 1 DAY)
  62. CEFTRIAXONE [Suspect]
     Active Substance: CEFTRIAXONE
     Indication: Bacterial infection
     Dosage: 2 GRAM, QD
  63. CEFTRIAXONE [Suspect]
     Active Substance: CEFTRIAXONE
     Indication: Sepsis
  64. CEFTRIAXONE [Suspect]
     Active Substance: CEFTRIAXONE
     Dosage: 2 GRAM, QD
  65. CEFTRIAXONE [Suspect]
     Active Substance: CEFTRIAXONE
     Dosage: 2 GRAM QD
     Dates: start: 20200530
  66. SODIUM PICOSULFATE [Suspect]
     Active Substance: SODIUM PICOSULFATE
     Indication: Constipation
  67. SODIUM PICOSULFATE [Suspect]
     Active Substance: SODIUM PICOSULFATE
  68. SODIUM PICOSULFATE [Suspect]
     Active Substance: SODIUM PICOSULFATE
  69. SODIUM PICOSULFATE [Suspect]
     Active Substance: SODIUM PICOSULFATE
  70. SODIUM PICOSULFATE [Suspect]
     Active Substance: SODIUM PICOSULFATE
  71. DARBEPOETIN ALFA [Suspect]
     Active Substance: DARBEPOETIN ALFA
     Indication: Anaemia
  72. DARBEPOETIN ALFA [Suspect]
     Active Substance: DARBEPOETIN ALFA
     Dosage: 0.71 MICROGRAM, QOD
  73. DARBEPOETIN ALFA [Suspect]
     Active Substance: DARBEPOETIN ALFA
     Dosage: 20 MILLIGRAM, QW
  74. DARBEPOETIN ALFA [Suspect]
     Active Substance: DARBEPOETIN ALFA
     Dosage: 1.42 MILLIGRAM, QW
  75. DARBEPOETIN ALFA [Suspect]
     Active Substance: DARBEPOETIN ALFA
     Dosage: 10 MILLIGRAM, BIWEEKLY
  76. DARBEPOETIN ALFA [Suspect]
     Active Substance: DARBEPOETIN ALFA
  77. MAGNESIUM OXIDE [Suspect]
     Active Substance: MAGNESIUM OXIDE
     Indication: Constipation
  78. SODIUM PICOSULFATE [Suspect]
     Active Substance: SODIUM PICOSULFATE
     Indication: Analgesic therapy
  79. SODIUM PICOSULFATE [Suspect]
     Active Substance: SODIUM PICOSULFATE
     Indication: Constipation
     Dosage: 10 MILLIGRAM, QD
  80. SODIUM PICOSULFATE [Suspect]
     Active Substance: SODIUM PICOSULFATE
  81. SODIUM PICOSULFATE [Suspect]
     Active Substance: SODIUM PICOSULFATE
  82. SODIUM PICOSULFATE [Suspect]
     Active Substance: SODIUM PICOSULFATE
  83. SODIUM PICOSULFATE [Suspect]
     Active Substance: SODIUM PICOSULFATE
  84. SIMVASTATIN [Suspect]
     Active Substance: SIMVASTATIN
     Indication: Blood cholesterol increased
     Dosage: 40 MILLIGRAM, QD
  85. SIMVASTATIN [Suspect]
     Active Substance: SIMVASTATIN
     Indication: Vitamin supplementation
  86. POLYETHYLENE GLYCOLS [Suspect]
     Active Substance: POLYETHYLENE GLYCOLS
     Indication: Iron deficiency
  87. POLYETHYLENE GLYCOLS [Suspect]
     Active Substance: POLYETHYLENE GLYCOLS
     Indication: Constipation
  88. POLYETHYLENE GLYCOLS [Suspect]
     Active Substance: POLYETHYLENE GLYCOLS
     Indication: Nutritional supplementation
  89. POLYETHYLENE GLYCOLS [Suspect]
     Active Substance: POLYETHYLENE GLYCOLS
  90. POLYETHYLENE GLYCOLS [Suspect]
     Active Substance: POLYETHYLENE GLYCOLS
  91. POLYETHYLENE GLYCOLS [Suspect]
     Active Substance: POLYETHYLENE GLYCOLS
     Indication: Iron deficiency
     Dosage: 3 MILLIGRAM, QW
  92. POLYETHYLENE GLYCOLS [Suspect]
     Active Substance: POLYETHYLENE GLYCOLS
     Indication: Constipation
  93. POLYETHYLENE GLYCOLS [Suspect]
     Active Substance: POLYETHYLENE GLYCOLS
     Indication: Nutritional supplementation
     Dosage: 17 MILLIGRAM, QD
  94. POLYETHYLENE GLYCOLS [Suspect]
     Active Substance: POLYETHYLENE GLYCOLS
  95. POLYETHYLENE GLYCOLS [Suspect]
     Active Substance: POLYETHYLENE GLYCOLS
     Indication: Constipation
     Dosage: 17 GRAM, QD
  96. POLYETHYLENE GLYCOLS [Suspect]
     Active Substance: POLYETHYLENE GLYCOLS
     Indication: Iron deficiency
     Dosage: 17 GRAM, QD
  97. POLYETHYLENE GLYCOLS [Suspect]
     Active Substance: POLYETHYLENE GLYCOLS
     Indication: Nutritional supplementation
     Dosage: UNK, QD
  98. LANSOPRAZOLE [Suspect]
     Active Substance: LANSOPRAZOLE
     Indication: Antacid therapy
     Dosage: 30 MILLIGRAM, QD
  99. LANSOPRAZOLE [Suspect]
     Active Substance: LANSOPRAZOLE
     Indication: Gastric pH decreased
  100. LANSOPRAZOLE [Suspect]
     Active Substance: LANSOPRAZOLE
  101. LANSOPRAZOLE [Suspect]
     Active Substance: LANSOPRAZOLE
     Dosage: 30 MG, QD
  102. LANSOPRAZOLE [Suspect]
     Active Substance: LANSOPRAZOLE
  103. DOBUTAMINE [Suspect]
     Active Substance: DOBUTAMINE HYDROCHLORIDE
     Indication: Cardiogenic shock
  104. DOBUTAMINE [Suspect]
     Active Substance: DOBUTAMINE HYDROCHLORIDE
  105. DOBUTAMINE [Suspect]
     Active Substance: DOBUTAMINE HYDROCHLORIDE
  106. DOBUTAMINE [Suspect]
     Active Substance: DOBUTAMINE HYDROCHLORIDE
  107. DOBUTAMINE [Suspect]
     Active Substance: DOBUTAMINE HYDROCHLORIDE
  108. DOBUTAMINE [Suspect]
     Active Substance: DOBUTAMINE HYDROCHLORIDE
  109. DOBUTAMINE [Suspect]
     Active Substance: DOBUTAMINE HYDROCHLORIDE
  110. DOBUTAMINE [Suspect]
     Active Substance: DOBUTAMINE HYDROCHLORIDE
  111. TOCOPHEROL [Suspect]
     Active Substance: TOCOPHEROL
     Indication: Nutritional supplementation
  112. TOCOPHEROL [Suspect]
     Active Substance: TOCOPHEROL
  113. POLYETHYLENE GLYCOLS [Suspect]
     Active Substance: POLYETHYLENE GLYCOLS
     Indication: Constipation
     Dosage: 17 MILLIGRAM, QD (17 MG, QD)
  114. POLYETHYLENE GLYCOLS [Suspect]
     Active Substance: POLYETHYLENE GLYCOLS
     Indication: Nutritional supplementation
     Dosage: 17 MILLIGRAM, QD (17 MG, QD)
  115. POLYETHYLENE GLYCOLS [Suspect]
     Active Substance: POLYETHYLENE GLYCOLS
  116. POLYETHYLENE GLYCOLS [Suspect]
     Active Substance: POLYETHYLENE GLYCOLS
     Dosage: 3 MILLIGRAM, QW (3 MG, 1/WEEK)
  117. POLYETHYLENE GLYCOLS [Suspect]
     Active Substance: POLYETHYLENE GLYCOLS
     Dosage: 17 MILLIGRAM, QD
  118. POLYETHYLENE GLYCOLS [Suspect]
     Active Substance: POLYETHYLENE GLYCOLS
     Dosage: 1 DOSAGE FORM, Q6H
  119. POLYETHYLENE GLYCOLS [Suspect]
     Active Substance: POLYETHYLENE GLYCOLS
     Dosage: 17 GRAM, QD (17 G, QD)
  120. POLYETHYLENE GLYCOLS [Suspect]
     Active Substance: POLYETHYLENE GLYCOLS
     Dosage: 17 MILLIGRAM, QD
  121. POLYETHYLENE GLYCOLS [Suspect]
     Active Substance: POLYETHYLENE GLYCOLS
  122. POLYETHYLENE GLYCOLS [Suspect]
     Active Substance: POLYETHYLENE GLYCOLS
     Dosage: 17 GRAM, QD
  123. POLYETHYLENE GLYCOLS [Suspect]
     Active Substance: POLYETHYLENE GLYCOLS
  124. POLYETHYLENE GLYCOLS [Suspect]
     Active Substance: POLYETHYLENE GLYCOLS
     Dosage: 17 GRAM, QD
  125. POLYETHYLENE GLYCOLS [Suspect]
     Active Substance: POLYETHYLENE GLYCOLS
  126. POLYETHYLENE GLYCOLS [Suspect]
     Active Substance: POLYETHYLENE GLYCOLS
  127. POLYETHYLENE GLYCOLS [Suspect]
     Active Substance: POLYETHYLENE GLYCOLS
     Dosage: UNK, QD
  128. MAGNESIUM OXIDE [Suspect]
     Active Substance: MAGNESIUM OXIDE
     Indication: Constipation
  129. DEXTROSE [Suspect]
     Active Substance: DEXTROSE MONOHYDRATE
     Indication: Nutritional supplementation
  130. DEXTROSE [Suspect]
     Active Substance: DEXTROSE MONOHYDRATE
     Indication: Vitamin supplementation
     Dosage: 12 GRAM, QD (1 EVERY 1 DAYS)
  131. DEXTROSE [Suspect]
     Active Substance: DEXTROSE MONOHYDRATE
     Dosage: 1 DOSAGE FORM, QD (1 EVERY 1 DAYS)
  132. DEXTROSE [Suspect]
     Active Substance: DEXTROSE MONOHYDRATE
     Dosage: 12.5 MILLIGRAM, QD
  133. DEXTROSE [Suspect]
     Active Substance: DEXTROSE MONOHYDRATE
  134. DEXTROSE [Suspect]
     Active Substance: DEXTROSE MONOHYDRATE
     Dosage: 12.5 MILLIGRAM, QD
  135. DEXTROSE [Suspect]
     Active Substance: DEXTROSE MONOHYDRATE
  136. DEXTROSE [Suspect]
     Active Substance: DEXTROSE MONOHYDRATE
  137. DEXTROSE [Suspect]
     Active Substance: DEXTROSE MONOHYDRATE
     Dosage: 50 MILLILITER, QD (1 EVERY 1 DAYS)
  138. DEXTROSE [Suspect]
     Active Substance: DEXTROSE MONOHYDRATE
     Dosage: 250 MILLILITER, QD (1 EVERY 1 DAYS)
  139. DEXTROSE [Suspect]
     Active Substance: DEXTROSE MONOHYDRATE
  140. DEXTROSE [Suspect]
     Active Substance: DEXTROSE MONOHYDRATE
     Dosage: 12.5 GRAM, QD (1 EVERY 1 DAYS)
  141. DEXTROSE [Suspect]
     Active Substance: DEXTROSE MONOHYDRATE
     Dosage: 12.5 MILLIGRAM, QD (1 EVERY 1 DAYS)
  142. MAGNESIUM OXIDE [Suspect]
     Active Substance: MAGNESIUM OXIDE
     Indication: Constipation
  143. CEFTRIAXONE [Suspect]
     Active Substance: CEFTRIAXONE
     Indication: Bacterial infection
     Dosage: 2 GRAM, QD
  144. CEFTRIAXONE [Suspect]
     Active Substance: CEFTRIAXONE
     Dosage: 2 GRAM, QD
  145. CEFTRIAXONE [Suspect]
     Active Substance: CEFTRIAXONE
     Dosage: 2 GRAM, QD
  146. DEXTROSE [Suspect]
     Active Substance: DEXTROSE MONOHYDRATE
     Indication: Nutritional supplementation
  147. MOVIPREP [Suspect]
     Active Substance: ASCORBIC ACID\POLYETHYLENE GLYCOL 3350\POTASSIUM CHLORIDE\SODIUM ASCORBATE\SODIUM CHLORIDE\SODIUM SU
     Indication: Constipation
     Dosage: 17 MILLIGRAM, QD
  148. MOVIPREP [Suspect]
     Active Substance: ASCORBIC ACID\POLYETHYLENE GLYCOL 3350\POTASSIUM CHLORIDE\SODIUM ASCORBATE\SODIUM CHLORIDE\SODIUM SU
  149. IRON [Suspect]
     Active Substance: IRON
     Indication: Product used for unknown indication
     Dosage: 1 DOSAGE FORM, Q6H
  150. CALCIUM CARBONATE [Suspect]
     Active Substance: CALCIUM CARBONATE
     Indication: Vitamin supplementation
  151. LANSOPRAZOLE [Suspect]
     Active Substance: LANSOPRAZOLE
     Indication: Antacid therapy
     Dosage: 30 MILLIGRAM, QD
  152. LANSOPRAZOLE [Suspect]
     Active Substance: LANSOPRAZOLE
     Indication: Gastric pH decreased
  153. LANSOPRAZOLE [Suspect]
     Active Substance: LANSOPRAZOLE
     Dosage: 30 MILLIGRAM, QD (1 EVERY 1 DAY)
  154. LANSOPRAZOLE [Suspect]
     Active Substance: LANSOPRAZOLE
     Dosage: 30 MILLIGRAM, QD
  155. LANSOPRAZOLE [Suspect]
     Active Substance: LANSOPRAZOLE
  156. LANSOPRAZOLE [Suspect]
     Active Substance: LANSOPRAZOLE
  157. LANSOPRAZOLE [Suspect]
     Active Substance: LANSOPRAZOLE
     Dosage: UNK, QD (1 EVERY 1 DAYS)
  158. LANSOPRAZOLE [Suspect]
     Active Substance: LANSOPRAZOLE
     Dosage: 60 MILLIGRAM, QD
  159. LANSOPRAZOLE [Suspect]
     Active Substance: LANSOPRAZOLE
     Dosage: UNK, Q6H
  160. LANSOPRAZOLE [Suspect]
     Active Substance: LANSOPRAZOLE
     Dosage: UNK, QD (1 EVERY 1 DAYS)
  161. LANSOPRAZOLE [Suspect]
     Active Substance: LANSOPRAZOLE
     Dosage: 30 MILLIGRAM, QD (1 EVERY 1 DAY)
  162. THEOPHYLLINE [Suspect]
     Active Substance: THEOPHYLLINE
     Indication: Chronic obstructive pulmonary disease
  163. THEOPHYLLINE [Suspect]
     Active Substance: THEOPHYLLINE
     Dosage: 4 DOSAGE FORM, QD
  164. THEOPHYLLINE [Suspect]
     Active Substance: THEOPHYLLINE
     Dosage: 1 DOSAGE FORM, Q6H
  165. POLYETHYLENE GLYCOL 4000 [Suspect]
     Active Substance: POLYETHYLENE GLYCOL 4000
     Indication: Constipation
     Dosage: 17 MILLIGRAM, QD (1 EVERY 1 DAYS)
  166. POLYETHYLENE GLYCOL 4000 [Suspect]
     Active Substance: POLYETHYLENE GLYCOL 4000
     Indication: Iron deficiency
     Dosage: 17 GRAM, QD (1 EVERY 1 DAYS)
  167. POLYETHYLENE GLYCOL 4000 [Suspect]
     Active Substance: POLYETHYLENE GLYCOL 4000
  168. POLYETHYLENE GLYCOL 4000 [Suspect]
     Active Substance: POLYETHYLENE GLYCOL 4000
     Dosage: 1 DOSAGE FORM, Q6H (1 EVERY 6 HOURS)
  169. POLYETHYLENE GLYCOL 4000 [Suspect]
     Active Substance: POLYETHYLENE GLYCOL 4000
     Dosage: 3 GRAM, QW (1 EVERY 1 WEEKS)
  170. POLYETHYLENE GLYCOL 4000 [Suspect]
     Active Substance: POLYETHYLENE GLYCOL 4000
  171. POLYETHYLENE GLYCOL 4000 [Suspect]
     Active Substance: POLYETHYLENE GLYCOL 4000
  172. POLYETHYLENE GLYCOL 4000 [Suspect]
     Active Substance: POLYETHYLENE GLYCOL 4000
  173. POLYETHYLENE GLYCOL 4000 [Suspect]
     Active Substance: POLYETHYLENE GLYCOL 4000
     Dosage: UNK, QD (1 EVERY 1 DAYS)
  174. POLYETHYLENE GLYCOL 4000 [Suspect]
     Active Substance: POLYETHYLENE GLYCOL 4000
     Dosage: UNK, QD (1 EVERY 1 DAYS)
  175. IPRATROPIUM BROMIDE [Suspect]
     Active Substance: IPRATROPIUM BROMIDE
     Indication: Sleep disorder therapy
  176. IPRATROPIUM BROMIDE [Suspect]
     Active Substance: IPRATROPIUM BROMIDE
     Indication: Dyspnoea
  177. IPRATROPIUM BROMIDE [Suspect]
     Active Substance: IPRATROPIUM BROMIDE
     Indication: Off label use
     Dosage: 4 DOSAGE FORM, QD (1 EVERY 1 DAYS)
  178. IPRATROPIUM BROMIDE [Suspect]
     Active Substance: IPRATROPIUM BROMIDE
     Indication: Intentional product misuse
  179. IPRATROPIUM BROMIDE [Suspect]
     Active Substance: IPRATROPIUM BROMIDE
     Indication: Dyspnoea
  180. IPRATROPIUM BROMIDE [Suspect]
     Active Substance: IPRATROPIUM BROMIDE
     Dosage: 4 DOSAGE FORM, QD (1 DF Q8H) ROUTE OF ADMIN (FREE TEXT): RESPIRATORY (INHALATION)
  181. IPRATROPIUM BROMIDE [Suspect]
     Active Substance: IPRATROPIUM BROMIDE
  182. IPRATROPIUM BROMIDE [Suspect]
     Active Substance: IPRATROPIUM BROMIDE
  183. IPRATROPIUM BROMIDE [Suspect]
     Active Substance: IPRATROPIUM BROMIDE
  184. IPRATROPIUM BROMIDE [Suspect]
     Active Substance: IPRATROPIUM BROMIDE
     Dosage: 1 DOSAGE FORM, QD ROUTE OF ADMIN (FREE TEXT): RESPIRATORY (INHALATION)
  185. IPRATROPIUM BROMIDE [Suspect]
     Active Substance: IPRATROPIUM BROMIDE
  186. ALOE VERA LEAF [Suspect]
     Active Substance: ALOE VERA LEAF
     Indication: Product used for unknown indication
     Dosage: 17 MILLIGRAM, QD
  187. FURAZOLIDONE [Suspect]
     Active Substance: FURAZOLIDONE
     Indication: Product used for unknown indication
  188. AMMONIUM CHLORIDE [Suspect]
     Active Substance: AMMONIUM CHLORIDE
     Indication: Product used for unknown indication
  189. ALLANTOIN [Suspect]
     Active Substance: ALLANTOIN
     Indication: Product used for unknown indication
     Dosage: 17 GRAM, QD
  190. SIMVASTATIN [Suspect]
     Active Substance: SIMVASTATIN
     Indication: Product used for unknown indication
     Dosage: 40 MILLIGRAM, QD
  191. INSULIN ASPART [Suspect]
     Active Substance: INSULIN ASPART
     Indication: Diabetes mellitus
  192. INSULIN ASPART [Suspect]
     Active Substance: INSULIN ASPART
  193. UNSPECIFIED INGREDIENT [Suspect]
     Active Substance: UNSPECIFIED INGREDIENT
     Indication: Product used for unknown indication
     Dosage: 250 MILLILITER, QD
  194. OSELTAMIVIR PHOSPHATE [Suspect]
     Active Substance: OSELTAMIVIR PHOSPHATE
     Indication: Product used for unknown indication
  195. HERBALS [Suspect]
     Active Substance: HERBALS
     Indication: Product used for unknown indication
  196. SODIUM PICOSULFATE [Suspect]
     Active Substance: SODIUM PICOSULFATE
     Indication: Product used for unknown indication
  197. CALCITRIOL [Suspect]
     Active Substance: CALCITRIOL
     Indication: Product used for unknown indication
     Dosage: 0.25 MICROGRAM, QD
  198. MANNITOL [Suspect]
     Active Substance: MANNITOL
     Indication: Product used for unknown indication
  199. SODIUM FERRIC GLUCONATE COMPLEX [Suspect]
     Active Substance: SODIUM FERRIC GLUCONATE COMPLEX
     Indication: Product used for unknown indication
  200. LIDOCAINE [Suspect]
     Active Substance: LIDOCAINE
     Indication: Product used for unknown indication
  201. HEPARIN SODIUM [Suspect]
     Active Substance: HEPARIN SODIUM
     Indication: Anticoagulant therapy
  202. HEPARIN SODIUM [Suspect]
     Active Substance: HEPARIN SODIUM
     Indication: Off label use
  203. HEPARIN SODIUM [Suspect]
     Active Substance: HEPARIN SODIUM
     Indication: Intentional product misuse
  204. HEPARIN SODIUM [Suspect]
     Active Substance: HEPARIN SODIUM
  205. HEPARIN SODIUM [Suspect]
     Active Substance: HEPARIN SODIUM
     Dosage: 50 MILLILITER, QD
  206. HEPARIN SODIUM [Suspect]
     Active Substance: HEPARIN SODIUM
  207. HEPARIN SODIUM [Suspect]
     Active Substance: HEPARIN SODIUM
     Dosage: 50 MILLILITER, QD
  208. HEPARIN SODIUM [Suspect]
     Active Substance: HEPARIN SODIUM
  209. HEPARIN SODIUM [Suspect]
     Active Substance: HEPARIN SODIUM
  210. HEPARIN SODIUM [Suspect]
     Active Substance: HEPARIN SODIUM
  211. HEPARIN SODIUM [Suspect]
     Active Substance: HEPARIN SODIUM
     Dosage: 50 MILLILITER, QD
  212. HEPARIN SODIUM [Suspect]
     Active Substance: HEPARIN SODIUM
  213. HEPARIN SODIUM [Suspect]
     Active Substance: HEPARIN SODIUM
  214. HEPARIN SODIUM [Suspect]
     Active Substance: HEPARIN SODIUM
  215. MELATONIN [Suspect]
     Active Substance: MELATONIN
     Indication: Product used for unknown indication
     Dosage: 3 MILLIGRAM, QD
  216. CLIOQUINOL [Suspect]
     Active Substance: CLIOQUINOL
     Indication: Product used for unknown indication
  217. NOREPINEPHRINE [Suspect]
     Active Substance: NOREPINEPHRINE
     Indication: Product used for unknown indication
  218. ALUMINUM HYDROXIDE [Suspect]
     Active Substance: ALUMINUM HYDROXIDE
     Indication: Product used for unknown indication
  219. ARANESP [Suspect]
     Active Substance: DARBEPOETIN ALFA
     Indication: Product used for unknown indication
  220. DEXTROSE [Suspect]
     Active Substance: DEXTROSE MONOHYDRATE
     Indication: Nutritional supplementation
  221. HERBALS [Suspect]
     Active Substance: HERBALS
     Indication: Product used for unknown indication
  222. BISMUTH [Suspect]
     Active Substance: BISMUTH SUBSALICYLATE
     Indication: Product used for unknown indication
  223. UMECLIDINIUM BROMIDE [Suspect]
     Active Substance: UMECLIDINIUM BROMIDE
     Indication: Product used for unknown indication
  224. OTRIVIN [Suspect]
     Active Substance: XYLOMETAZOLINE
     Indication: Product used for unknown indication
     Dosage: 4 MILLIGRAM, MONTHLY
  225. OTRIVIN [Suspect]
     Active Substance: XYLOMETAZOLINE
     Dosage: 125 MILLIGRAM, QD
  226. OTRIVIN [Suspect]
     Active Substance: XYLOMETAZOLINE
  227. AMMONIUM BROMIDE [Suspect]
     Active Substance: AMMONIUM BROMIDE
     Indication: Dyspnoea
  228. BUFEXAMAC\LIDOCAINE HYDROCHLORIDE [Suspect]
     Active Substance: BUFEXAMAC\LIDOCAINE HYDROCHLORIDE
     Indication: Constipation
  229. FENOTEROL HYDROBROMIDE [Suspect]
     Active Substance: FENOTEROL HYDROBROMIDE
     Indication: Dyspnoea
  230. FLUTICASONE PROPIONATE [Suspect]
     Active Substance: FLUTICASONE PROPIONATE
     Indication: Nutritional supplementation
  231. LANTHANUM CARBONATE [Suspect]
     Active Substance: LANTHANUM CARBONATE
     Indication: Hyperphosphataemia
     Dosage: 500 MILLIGRAM, QD (ONCE A DAY)
  232. LANTHANUM CARBONATE [Suspect]
     Active Substance: LANTHANUM CARBONATE
     Dosage: 550 MILLIGRAM, QD (ONCE A DAY)
  233. LANTHANUM CARBONATE [Suspect]
     Active Substance: LANTHANUM CARBONATE
  234. LANTHANUM CARBONATE [Suspect]
     Active Substance: LANTHANUM CARBONATE
     Dosage: 500 MILLIGRAM, QD (ONCE A DAY)
  235. LANTHANUM CARBONATE [Suspect]
     Active Substance: LANTHANUM CARBONATE
     Dosage: 500 MICROGRAM, QD (ONCE A DAY)
  236. LANTHANUM CARBONATE [Suspect]
     Active Substance: LANTHANUM CARBONATE
     Dosage: 500 MICROGRAM, Q8H (EVERY 8 HOURS)
  237. MAGNESIUM CARBONATE HYDROXIDE [Suspect]
     Active Substance: MAGNESIUM CARBONATE HYDROXIDE
     Indication: Constipation
  238. AMIODARONE [Suspect]
     Active Substance: AMIODARONE
     Indication: Ventricular fibrillation
     Dosage: 150 MILLIGRAM, QD
  239. AMIODARONE [Suspect]
     Active Substance: AMIODARONE
     Indication: Drug therapy
  240. AMIODARONE [Suspect]
     Active Substance: AMIODARONE
     Dosage: 150 UG, QD
  241. FOSRENOL [Suspect]
     Active Substance: LANTHANUM CARBONATE
     Indication: Blood phosphorus abnormal
     Dosage: 550 MILLIGRAM, QD
  242. FOSRENOL [Suspect]
     Active Substance: LANTHANUM CARBONATE
     Indication: Hyperphosphataemia
  243. FOSRENOL [Suspect]
     Active Substance: LANTHANUM CARBONATE
     Dosage: 500 MICROGRAM, QD
  244. FOSRENOL [Suspect]
     Active Substance: LANTHANUM CARBONATE
     Dosage: 500 MILLIGRAM, QD
  245. FOSRENOL [Suspect]
     Active Substance: LANTHANUM CARBONATE
     Dosage: 500 MICROGRAM, Q8H
  246. FOSRENOL [Suspect]
     Active Substance: LANTHANUM CARBONATE
  247. DEXLANSOPRAZOLE [Suspect]
     Active Substance: DEXLANSOPRAZOLE
     Indication: Product used for unknown indication
     Dosage: 60 MILLIGRAM, QD (1 EVERY 1 DAYS)
  248. DEXLANSOPRAZOLE [Suspect]
     Active Substance: DEXLANSOPRAZOLE
     Dosage: 6 DOSAGE FORM, Q6H (1 EVERY 6 HOURS)
  249. POLYETHYLENE GLYCOLS [Suspect]
     Active Substance: POLYETHYLENE GLYCOLS
     Indication: Product used for unknown indication
     Dosage: 17 MILLIGRAM, QD
  250. SODIUM SULFATE [Suspect]
     Active Substance: SODIUM SULFATE
     Indication: Product used for unknown indication
  251. SODIUM CHLORIDE [Suspect]
     Active Substance: SODIUM CHLORIDE
     Indication: Nutritional supplementation
  252. SODIUM CHLORIDE [Suspect]
     Active Substance: SODIUM CHLORIDE
  253. POTASSIUM CHLORIDE [Suspect]
     Active Substance: POTASSIUM CHLORIDE
     Indication: Constipation
  254. POTASSIUM CHLORIDE [Suspect]
     Active Substance: POTASSIUM CHLORIDE
     Dosage: 17 MILLIGRAM, QD (1 EVERY 1 DAYS)
  255. POTASSIUM CHLORIDE [Suspect]
     Active Substance: POTASSIUM CHLORIDE
     Dosage: 17 GRAM, QD (1 EVERY 1 DAYS)
  256. SODIUM ASCORBATE [Suspect]
     Active Substance: SODIUM ASCORBATE
     Indication: Product used for unknown indication
  257. PHYTONADIONE [Suspect]
     Active Substance: PHYTONADIONE
     Indication: Vitamin supplementation
     Dosage: 5 MILLIGRAM, QD (ONCE A DAY)
  258. PHYTONADIONE [Suspect]
     Active Substance: PHYTONADIONE
  259. CORTISONE [Suspect]
     Active Substance: CORTISONE
     Indication: Product used for unknown indication
  260. EFINACONAZOLE [Suspect]
     Active Substance: EFINACONAZOLE
     Indication: Product used for unknown indication
  261. IPRATROPIUM [Suspect]
     Active Substance: IPRATROPIUM
     Indication: Sleep disorder therapy
  262. IPRATROPIUM [Suspect]
     Active Substance: IPRATROPIUM
     Indication: Dyspnoea
  263. METRONIDAZOLE [Suspect]
     Active Substance: METRONIDAZOLE
     Indication: Intentional product misuse
  264. METRONIDAZOLE [Suspect]
     Active Substance: METRONIDAZOLE
     Indication: Bacterial infection
     Dosage: 500 MG, Q8H
  265. METRONIDAZOLE [Suspect]
     Active Substance: METRONIDAZOLE
     Dosage: 1500 MG, QD (500 MG TID)
  266. METRONIDAZOLE [Suspect]
     Active Substance: METRONIDAZOLE
     Dosage: 1500 MG, QD
  267. METRONIDAZOLE [Suspect]
     Active Substance: METRONIDAZOLE
     Dosage: 500 MG, Q8H (1500 MG QD)
  268. ALBUTEROL [Suspect]
     Active Substance: ALBUTEROL
     Indication: Chronic obstructive pulmonary disease
     Dosage: 4 DOSAGE FORM, QD (1 EVERY 1 DAYS)
  269. ALBUTEROL [Suspect]
     Active Substance: ALBUTEROL
     Dosage: 1 DOSAGE FORM, Q6H (1 EVERY 6 HOURS)
  270. ALBUTEROL [Suspect]
     Active Substance: ALBUTEROL
  271. ALBUTEROL [Suspect]
     Active Substance: ALBUTEROL
  272. ASCORBIC ACID\PEG-3350\POTASSIUM CHLORIDE\SODIUM (ASCORBATE/CHLORIDE/S [Suspect]
     Active Substance: ASCORBIC ACID\POLYETHYLENE GLYCOL 3350\POTASSIUM CHLORIDE\SODIUM ASCORBATE\SODIUM CHLORIDE\SODIUM SU
     Indication: Constipation
     Dosage: 17 GRAM, QD (1 EVERY 24 HOURS)
  273. ASCORBIC ACID\PEG-3350\POTASSIUM CHLORIDE\SODIUM (ASCORBATE/CHLORIDE/S [Suspect]
     Active Substance: ASCORBIC ACID\POLYETHYLENE GLYCOL 3350\POTASSIUM CHLORIDE\SODIUM ASCORBATE\SODIUM CHLORIDE\SODIUM SU
  274. ALBUTEROL SULFATE [Suspect]
     Active Substance: ALBUTEROL SULFATE
     Indication: Chronic obstructive pulmonary disease
     Dosage: 4 DOSAGE FORM, QD
  275. ALBUTEROL SULFATE [Suspect]
     Active Substance: ALBUTEROL SULFATE
     Dosage: 1 DF, QID
  276. ALBUTEROL SULFATE [Suspect]
     Active Substance: ALBUTEROL SULFATE
     Dosage: UNK UNK, Q6H
  277. ALBUTEROL SULFATE [Suspect]
     Active Substance: ALBUTEROL SULFATE
     Dosage: UNK UNK, Q6H
  278. ALBUTEROL SULFATE [Suspect]
     Active Substance: ALBUTEROL SULFATE
     Dosage: 1 DF, QID
  279. ALBUTEROL SULFATE [Suspect]
     Active Substance: ALBUTEROL SULFATE
  280. ALBUTEROL SULFATE [Suspect]
     Active Substance: ALBUTEROL SULFATE
     Dosage: 4 DOSAGE FORM, Q6H (4 DOSAGE FORM, QD)
  281. ALBUTEROL SULFATE [Suspect]
     Active Substance: ALBUTEROL SULFATE
  282. ALBUTEROL SULFATE [Suspect]
     Active Substance: ALBUTEROL SULFATE
  283. METAMIZOLE SODIUM [Suspect]
     Active Substance: METAMIZOLE SODIUM
     Indication: Vitamin supplementation
  284. METAMIZOLE SODIUM [Suspect]
     Active Substance: METAMIZOLE SODIUM
     Dosage: 5 MG, QD
  285. HYDROMORPHONE HYDROCHLORIDE [Suspect]
     Active Substance: HYDROMORPHONE HYDROCHLORIDE
     Indication: Analgesic therapy
     Dosage: 6 MG
  286. HYDROMORPHONE HYDROCHLORIDE [Suspect]
     Active Substance: HYDROMORPHONE HYDROCHLORIDE
     Dosage: 4 MG, Q4H
  287. HYDROMORPHONE HYDROCHLORIDE [Suspect]
     Active Substance: HYDROMORPHONE HYDROCHLORIDE
     Dosage: 6 MG, Q4H
  288. HYDROMORPHONE HYDROCHLORIDE [Suspect]
     Active Substance: HYDROMORPHONE HYDROCHLORIDE
     Dosage: 6 MG
  289. HYDROMORPHONE HYDROCHLORIDE [Suspect]
     Active Substance: HYDROMORPHONE HYDROCHLORIDE
     Dosage: 24 MG, Q6H
  290. HYDROMORPHONE HYDROCHLORIDE [Suspect]
     Active Substance: HYDROMORPHONE HYDROCHLORIDE
     Dosage: 17 MG, QD
  291. HYDROMORPHONE HYDROCHLORIDE [Suspect]
     Active Substance: HYDROMORPHONE HYDROCHLORIDE
     Dosage: 1 MG, Q4H
  292. HYDROMORPHONE HYDROCHLORIDE [Suspect]
     Active Substance: HYDROMORPHONE HYDROCHLORIDE
     Dosage: 24 MG, Q4H
  293. HYDROMORPHONE HYDROCHLORIDE [Suspect]
     Active Substance: HYDROMORPHONE HYDROCHLORIDE
     Dosage: 6 MG, Q6H
  294. HYDROMORPHONE HYDROCHLORIDE [Suspect]
     Active Substance: HYDROMORPHONE HYDROCHLORIDE
     Dosage: 1 MG, QD
  295. HYDROMORPHONE HYDROCHLORIDE [Suspect]
     Active Substance: HYDROMORPHONE HYDROCHLORIDE
     Dosage: 17 MILLIGRAM, QD
  296. HYDROMORPHONE HYDROCHLORIDE [Suspect]
     Active Substance: HYDROMORPHONE HYDROCHLORIDE
     Dosage: 96 MG, QD
  297. LANTHANUM CARBONATE [Suspect]
     Active Substance: LANTHANUM CARBONATE
     Indication: Hyperphosphataemia
  298. LANTHANUM CARBONATE [Suspect]
     Active Substance: LANTHANUM CARBONATE
     Indication: Blood phosphorus abnormal
     Dosage: 550 MILLIGRAM, QD
  299. LANTHANUM CARBONATE [Suspect]
     Active Substance: LANTHANUM CARBONATE
  300. LANTHANUM CARBONATE [Suspect]
     Active Substance: LANTHANUM CARBONATE
     Dosage: 500 MILLIGRAM, QD
  301. LANTHANUM CARBONATE [Suspect]
     Active Substance: LANTHANUM CARBONATE
  302. LANTHANUM CARBONATE [Suspect]
     Active Substance: LANTHANUM CARBONATE
  303. LANTHANUM CARBONATE [Suspect]
     Active Substance: LANTHANUM CARBONATE
     Dosage: 550 MILLIGRAM, QD
  304. LANTHANUM CARBONATE [Suspect]
     Active Substance: LANTHANUM CARBONATE
     Dosage: 550 MILLIGRAM, Q8H
  305. LANTHANUM CARBONATE [Suspect]
     Active Substance: LANTHANUM CARBONATE
     Dosage: 500 MILLIGRAM, QD
  306. DEXLANSOPRAZOLE [Suspect]
     Active Substance: DEXLANSOPRAZOLE
     Indication: Product used for unknown indication
  307. DEXLANSOPRAZOLE [Suspect]
     Active Substance: DEXLANSOPRAZOLE
     Dosage: 60 MILLIGRAM, QD
  308. MAALOX ANTACID [Suspect]
     Active Substance: ALUMINUM HYDROXIDE\DIMETHICONE\MAGNESIUM HYDROXIDE
     Indication: Constipation
  309. MAALOX ANTACID [Suspect]
     Active Substance: ALUMINUM HYDROXIDE\DIMETHICONE\MAGNESIUM HYDROXIDE
  310. PREVACID [Suspect]
     Active Substance: LANSOPRAZOLE
     Indication: Antacid therapy
     Dosage: 30 MILLIGRAM, QD
  311. PREVACID [Suspect]
     Active Substance: LANSOPRAZOLE
  312. PREVACID [Suspect]
     Active Substance: LANSOPRAZOLE
     Dosage: 1 DOSAGE FORM, Q6H (1 EVERY 6 HOURS)
  313. PREVACID [Suspect]
     Active Substance: LANSOPRAZOLE
  314. PREVACID [Suspect]
     Active Substance: LANSOPRAZOLE
  315. PREVACID [Suspect]
     Active Substance: LANSOPRAZOLE
  316. PREVACID [Suspect]
     Active Substance: LANSOPRAZOLE
  317. DEXILANT [Suspect]
     Active Substance: DEXLANSOPRAZOLE
     Indication: Product used for unknown indication
     Dosage: 60 MILLIGRAM, QD
  318. METRONIDAZOLE [Suspect]
     Active Substance: METRONIDAZOLE
     Indication: Bacterial infection
  319. METRONIDAZOLE [Suspect]
     Active Substance: METRONIDAZOLE
     Dosage: 500 MILLIGRAM, Q8H
  320. METRONIDAZOLE [Suspect]
     Active Substance: METRONIDAZOLE
     Dosage: 500 MILLIGRAM, QD
  321. METRONIDAZOLE [Suspect]
     Active Substance: METRONIDAZOLE
     Dosage: 1500 MILLIGRAM, QD
  322. METRONIDAZOLE [Suspect]
     Active Substance: METRONIDAZOLE
     Dosage: 1500 MILLIGRAM, TID
  323. METRONIDAZOLE [Suspect]
     Active Substance: METRONIDAZOLE
     Dosage: 500 MILLIGRAM, TID
  324. METRONIDAZOLE [Suspect]
     Active Substance: METRONIDAZOLE
     Dosage: 500 MILLIGRAM, TID
  325. METRONIDAZOLE [Suspect]
     Active Substance: METRONIDAZOLE
  326. METRONIDAZOLE [Suspect]
     Active Substance: METRONIDAZOLE
     Dosage: UNK, Q3H
  327. METRONIDAZOLE [Suspect]
     Active Substance: METRONIDAZOLE
     Dosage: 1500 MICROGRAM, TID
  328. METRONIDAZOLE [Suspect]
     Active Substance: METRONIDAZOLE
     Dosage: 500 MICROGRAM, TID
  329. METRONIDAZOLE [Suspect]
     Active Substance: METRONIDAZOLE
     Dosage: 1500 MICROGRAM, QD
  330. METRONIDAZOLE [Suspect]
     Active Substance: METRONIDAZOLE
  331. METRONIDAZOLE [Suspect]
     Active Substance: METRONIDAZOLE
  332. METRONIDAZOLE [Suspect]
     Active Substance: METRONIDAZOLE
  333. METRONIDAZOLE [Suspect]
     Active Substance: METRONIDAZOLE
  334. METRONIDAZOLE [Suspect]
     Active Substance: METRONIDAZOLE
     Dosage: 1500 MILLIGRAM, Q8H
  335. METRONIDAZOLE [Suspect]
     Active Substance: METRONIDAZOLE
     Dosage: UNK, Q8H
  336. METRONIDAZOLE [Suspect]
     Active Substance: METRONIDAZOLE
     Dosage: 500 MICROGRAM, Q8H (1 EVERY 8 HOURS)
  337. METRONIDAZOLE [Suspect]
     Active Substance: METRONIDAZOLE
     Dosage: 1500 MICROGRAM, QD (1 EVERY 1 DAYS)
  338. METRONIDAZOLE [Suspect]
     Active Substance: METRONIDAZOLE
     Dosage: 500 MICROGRAM, QD (1 EVERY 1 DAYS)
  339. METRONIDAZOLE [Suspect]
     Active Substance: METRONIDAZOLE
     Dosage: 500 MILLIGRAM, TID (3 EVERY 1 DAYS)
  340. METRONIDAZOLE [Suspect]
     Active Substance: METRONIDAZOLE
     Dosage: 1500 MILLIGRAM, TID (3 EVERY 1 DAYS)
  341. METRONIDAZOLE [Suspect]
     Active Substance: METRONIDAZOLE
     Dosage: UNK, TID (3 EVERY 1 DAYS)
  342. METRONIDAZOLE [Suspect]
     Active Substance: METRONIDAZOLE
     Dosage: UNK UNK, Q3H (1 EVERY 3 HOURS)
  343. PHYTONADIONE [Suspect]
     Active Substance: PHYTONADIONE
     Indication: Vitamin supplementation
  344. PHYTONADIONE [Suspect]
     Active Substance: PHYTONADIONE
  345. PHYTONADIONE [Suspect]
     Active Substance: PHYTONADIONE
     Dosage: 5 MILLIGRAM, QD
  346. PHYTONADIONE [Suspect]
     Active Substance: PHYTONADIONE
  347. PHYTONADIONE [Suspect]
     Active Substance: PHYTONADIONE
     Dosage: 5 MILLIGRAM, QD ( 1 EVERY 1 DAYS)
  348. SODIUM CITRATE [Suspect]
     Active Substance: SODIUM CITRATE
     Indication: Thrombosis
  349. SODIUM CITRATE [Suspect]
     Active Substance: SODIUM CITRATE
     Indication: Anticoagulant therapy
  350. SODIUM CITRATE [Suspect]
     Active Substance: SODIUM CITRATE
  351. SODIUM CITRATE [Suspect]
     Active Substance: SODIUM CITRATE
     Dosage: 2.5 MILLILITER, QD (1 EVERY 1 DAYS)
  352. SODIUM CITRATE [Suspect]
     Active Substance: SODIUM CITRATE
     Dosage: 2.5 MILLIGRAM, QD (1 EVERY 1 DAYS)
  353. SODIUM CITRATE [Suspect]
     Active Substance: SODIUM CITRATE
     Dosage: 2 GRAM, QD (1 EVERY 1 DAYS)
  354. SODIUM CITRATE [Suspect]
     Active Substance: SODIUM CITRATE
  355. SODIUM CITRATE [Suspect]
     Active Substance: SODIUM CITRATE
  356. SODIUM CITRATE [Suspect]
     Active Substance: SODIUM CITRATE
     Dosage: 2.5 MILLILITER, QD (1 EVERY 1 DAYS)
  357. SODIUM CITRATE [Suspect]
     Active Substance: SODIUM CITRATE
     Dosage: 2 GRAM, QD (1 EVERY 1 DAYS)
  358. SODIUM BICARBONATE [Suspect]
     Active Substance: SODIUM BICARBONATE
     Indication: Nutritional supplementation
  359. DEXTROSE\SODIUM CHLORIDE [Suspect]
     Active Substance: DEXTROSE\SODIUM CHLORIDE
     Indication: Nutritional supplementation
  360. ONDANSETRON [Suspect]
     Active Substance: ONDANSETRON
     Indication: Vomiting
     Dosage: 12 MILLIGRAM, Q8H (1 EVERY 8 HOURS)
  361. ONDANSETRON [Suspect]
     Active Substance: ONDANSETRON
     Indication: Nausea
  362. ONDANSETRON [Suspect]
     Active Substance: ONDANSETRON
     Dosage: 40 MILLIGRAM, Q8H
  363. ONDANSETRON [Suspect]
     Active Substance: ONDANSETRON
     Dosage: 12 MILLIGRAM, QD
  364. ONDANSETRON [Suspect]
     Active Substance: ONDANSETRON
     Dosage: 12 MILLIGRAM, TID
  365. ONDANSETRON [Suspect]
     Active Substance: ONDANSETRON
     Dosage: 36 MILLIGRAM, Q8H
  366. ONDANSETRON [Suspect]
     Active Substance: ONDANSETRON
     Dosage: 4 MILLIGRAM, QD
     Dates: start: 20200601
  367. ONDANSETRON [Suspect]
     Active Substance: ONDANSETRON
     Dosage: 14.14 MILLIGRAM, Q8H
  368. ONDANSETRON [Suspect]
     Active Substance: ONDANSETRON
     Dosage: 8 MILLIGRAM, Q8H
  369. ONDANSETRON [Suspect]
     Active Substance: ONDANSETRON
     Dosage: 41.14 MILLIGRAM, Q8H
  370. ONDANSETRON [Suspect]
     Active Substance: ONDANSETRON
  371. ONDANSETRON [Suspect]
     Active Substance: ONDANSETRON
     Dosage: 36 MILLIGRAM, QD
  372. ONDANSETRON [Suspect]
     Active Substance: ONDANSETRON
     Dosage: 4 MILLIGRAM, Q8H
  373. ONDANSETRON [Suspect]
     Active Substance: ONDANSETRON
  374. ONDANSETRON [Suspect]
     Active Substance: ONDANSETRON
     Dosage: 24 MILLIGRAM, Q8H
  375. ONDANSETRON [Suspect]
     Active Substance: ONDANSETRON
     Dosage: 24 MILLIGRAM, QD
  376. ONDANSETRON [Suspect]
     Active Substance: ONDANSETRON
     Dosage: 1 DOSAGE FORM, Q8H
  377. ONDANSETRON [Suspect]
     Active Substance: ONDANSETRON
     Dosage: 36 MILLIGRAM, TID
  378. ONDANSETRON [Suspect]
     Active Substance: ONDANSETRON
     Dosage: 123.3 MILLIGRAM, QD
  379. ONDANSETRON [Suspect]
     Active Substance: ONDANSETRON
     Dosage: 17 MILLIGRAM, QD
     Dates: start: 20200601
  380. ONDANSETRON [Suspect]
     Active Substance: ONDANSETRON
  381. ONDANSETRON [Suspect]
     Active Substance: ONDANSETRON
  382. ONDANSETRON [Suspect]
     Active Substance: ONDANSETRON
  383. ONDANSETRON [Suspect]
     Active Substance: ONDANSETRON
  384. ONDANSETRON [Suspect]
     Active Substance: ONDANSETRON
  385. ONDANSETRON [Suspect]
     Active Substance: ONDANSETRON
  386. ONDANSETRON [Suspect]
     Active Substance: ONDANSETRON
     Dosage: UNK, Q8H
  387. ONDANSETRON [Suspect]
     Active Substance: ONDANSETRON
     Dosage: 4 MILLIGRAM, TID
  388. ONDANSETRON [Suspect]
     Active Substance: ONDANSETRON
  389. ONDANSETRON [Suspect]
     Active Substance: ONDANSETRON
  390. ONDANSETRON [Suspect]
     Active Substance: ONDANSETRON
  391. ONDANSETRON [Suspect]
     Active Substance: ONDANSETRON
  392. ONDANSETRON [Suspect]
     Active Substance: ONDANSETRON
  393. ONDANSETRON [Suspect]
     Active Substance: ONDANSETRON
  394. ONDANSETRON [Suspect]
     Active Substance: ONDANSETRON
  395. ONDANSETRON [Suspect]
     Active Substance: ONDANSETRON
  396. ONDANSETRON [Suspect]
     Active Substance: ONDANSETRON
  397. ONDANSETRON [Suspect]
     Active Substance: ONDANSETRON
  398. ONDANSETRON [Suspect]
     Active Substance: ONDANSETRON
  399. ONDANSETRON [Suspect]
     Active Substance: ONDANSETRON
  400. ONDANSETRON [Suspect]
     Active Substance: ONDANSETRON
  401. ONDANSETRON [Suspect]
     Active Substance: ONDANSETRON
  402. ONDANSETRON [Suspect]
     Active Substance: ONDANSETRON
  403. ONDANSETRON [Suspect]
     Active Substance: ONDANSETRON
  404. ONDANSETRON [Suspect]
     Active Substance: ONDANSETRON
     Dosage: 17 MILLIGRAM, QD
  405. ONDANSETRON [Suspect]
     Active Substance: ONDANSETRON
  406. ONDANSETRON [Suspect]
     Active Substance: ONDANSETRON
     Dosage: 36 MILLIGRAM, Q8H (1 EVERY 8 HOUR)
  407. ONDANSETRON [Suspect]
     Active Substance: ONDANSETRON
  408. ONDANSETRON [Suspect]
     Active Substance: ONDANSETRON
  409. ONDANSETRON [Suspect]
     Active Substance: ONDANSETRON
  410. CALCIUM [Suspect]
     Active Substance: CALCIUM
     Indication: Product used for unknown indication
  411. PREVACID [Suspect]
     Active Substance: LANSOPRAZOLE
     Indication: Antacid therapy
     Dosage: 30 MILLIGRAM, QD
  412. PREVACID [Suspect]
     Active Substance: LANSOPRAZOLE
  413. HYDROCORTISONE [Suspect]
     Active Substance: HYDROCORTISONE
     Indication: Angioedema
  414. RAMIPRIL [Suspect]
     Active Substance: RAMIPRIL
     Indication: Asthma
  415. RAMIPRIL [Suspect]
     Active Substance: RAMIPRIL
     Indication: Prophylaxis
  416. MESALAMINE [Suspect]
     Active Substance: MESALAMINE
     Indication: Product used for unknown indication
  417. DALTEPARIN [Suspect]
     Active Substance: DALTEPARIN
     Indication: Product used for unknown indication
  418. DALTEPARIN [Suspect]
     Active Substance: DALTEPARIN
  419. DALTEPARIN SODIUM [Suspect]
     Active Substance: DALTEPARIN SODIUM
     Indication: Pulmonary embolism
  420. ATROVENT [Suspect]
     Active Substance: IPRATROPIUM BROMIDE
     Indication: Dyspnoea
     Dosage: UNK, QID
  421. ATROVENT [Suspect]
     Active Substance: IPRATROPIUM BROMIDE
     Indication: Sleep disorder therapy
     Dosage: 1 DOSAGE FORM, Q8H
  422. ATROVENT [Suspect]
     Active Substance: IPRATROPIUM BROMIDE
  423. ATROVENT [Suspect]
     Active Substance: IPRATROPIUM BROMIDE
  424. ATROVENT [Suspect]
     Active Substance: IPRATROPIUM BROMIDE
     Dosage: 3 DOSAGE FORM, QD
  425. ATROVENT [Suspect]
     Active Substance: IPRATROPIUM BROMIDE
     Dosage: 1 DOSAGE FORM, QD
  426. ATROVENT [Suspect]
     Active Substance: IPRATROPIUM BROMIDE
     Dosage: 1 DOSAGE FORM, Q6H
  427. ATROVENT [Suspect]
     Active Substance: IPRATROPIUM BROMIDE
     Dosage: 4 DOSAGE FORM, QD
  428. ATROVENT [Suspect]
     Active Substance: IPRATROPIUM BROMIDE
  429. ATROVENT [Suspect]
     Active Substance: IPRATROPIUM BROMIDE
  430. HEPARIN CALCIUM [Suspect]
     Active Substance: HEPARIN CALCIUM
     Indication: Anticoagulant therapy
  431. CALCIUM ASCORBATE [Suspect]
     Active Substance: CALCIUM ASCORBATE
     Indication: Vitamin supplementation
  432. ALLOPURINOL [Suspect]
     Active Substance: ALLOPURINOL
     Indication: Blood uric acid increased
  433. ALLOPURINOL [Suspect]
     Active Substance: ALLOPURINOL
     Dosage: 100 MILLIGRAM, QD (1 EVERY 1 DAYS)
  434. ALLOPURINOL [Suspect]
     Active Substance: ALLOPURINOL
     Dosage: 1 DOSAGE FORM, QD (1 EVERY 1 DAY)
  435. ALLOPURINOL [Suspect]
     Active Substance: ALLOPURINOL
  436. ALUMINUM HYDROXIDE\MAGNESIUM HYDROXIDE [Suspect]
     Active Substance: ALUMINUM HYDROXIDE\MAGNESIUM HYDROXIDE
     Indication: Constipation
  437. ALUMINUM HYDROXIDE\MAGNESIUM HYDROXIDE [Suspect]
     Active Substance: ALUMINUM HYDROXIDE\MAGNESIUM HYDROXIDE
  438. ALUMINUM HYDROXIDE\MAGNESIUM HYDROXIDE [Suspect]
     Active Substance: ALUMINUM HYDROXIDE\MAGNESIUM HYDROXIDE
  439. ALUMINUM HYDROXIDE\MAGNESIUM HYDROXIDE [Suspect]
     Active Substance: ALUMINUM HYDROXIDE\MAGNESIUM HYDROXIDE
  440. AMIODARONE HYDROCHLORIDE [Suspect]
     Active Substance: AMIODARONE HYDROCHLORIDE
     Indication: Ventricular fibrillation
     Dosage: 150 MILLIGRAM, QD (1 EVERY 1 DAY)
  441. AMIODARONE HYDROCHLORIDE [Suspect]
     Active Substance: AMIODARONE HYDROCHLORIDE
     Indication: Drug therapy
  442. AMIODARONE HYDROCHLORIDE [Suspect]
     Active Substance: AMIODARONE HYDROCHLORIDE
  443. BETAMETHASONE [Suspect]
     Active Substance: BETAMETHASONE
     Indication: Swelling
  444. BETAMETHASONE [Suspect]
     Active Substance: BETAMETHASONE
  445. BISMUTH SUBSALICYLATE [Suspect]
     Active Substance: BISMUTH SUBSALICYLATE
     Indication: Constipation
  446. BISMUTH SUBSALICYLATE [Suspect]
     Active Substance: BISMUTH SUBSALICYLATE
  447. CALCIUM GLUCONATE [Suspect]
     Active Substance: CALCIUM GLUCONATE
     Indication: Product used for unknown indication
  448. CEFTRIAXONE SODIUM [Suspect]
     Active Substance: CEFTRIAXONE SODIUM
     Indication: Bacterial infection
  449. CEFTRIAXONE SODIUM [Suspect]
     Active Substance: CEFTRIAXONE SODIUM
  450. SODIUM PICOSULFATE [Suspect]
     Active Substance: SODIUM PICOSULFATE
     Indication: Constipation
     Dosage: 10 MILLIGRAM, QD (1 EVERY 1 DAY)
  451. SODIUM PICOSULFATE [Suspect]
     Active Substance: SODIUM PICOSULFATE
     Dosage: 10 MILLIGRAM, QD (1 EVERY 1 DAY)
  452. FLUTICASONE FUROATE [Suspect]
     Active Substance: FLUTICASONE FUROATE
     Indication: Product used for unknown indication
  453. PYRIDOXINE HYDROCHLORIDE [Suspect]
     Active Substance: PYRIDOXINE HYDROCHLORIDE
     Indication: Analgesic therapy
  454. PYRIDOXINE HYDROCHLORIDE [Suspect]
     Active Substance: PYRIDOXINE HYDROCHLORIDE
     Indication: Constipation
  455. PYRIDOXINE HYDROCHLORIDE [Suspect]
     Active Substance: PYRIDOXINE HYDROCHLORIDE
     Indication: Vitamin supplementation
  456. VITAMIN A PALMITATE [Suspect]
     Active Substance: VITAMIN A PALMITATE
     Indication: Constipation
     Dosage: 17 GRAM, QD (1 EVERY 1 DAY)
  457. RIBOFLAVIN [Suspect]
     Active Substance: RIBOFLAVIN
     Indication: Product used for unknown indication
  458. SIMVASTATIN [Suspect]
     Active Substance: SIMVASTATIN
     Indication: Vitamin supplementation
     Dosage: 40 MILLIGRAM, QD (1 EVERY 1 DAYS)
  459. SIMVASTATIN [Suspect]
     Active Substance: SIMVASTATIN
     Indication: Blood cholesterol increased
  460. SIMVASTATIN [Suspect]
     Active Substance: SIMVASTATIN
  461. SODIUM FERRIC GLUCONATE COMPLEX [Suspect]
     Active Substance: SODIUM FERRIC GLUCONATE COMPLEX
     Indication: Iron deficiency
     Dosage: 125 MILLIGRAM, MONTHLY
  462. SODIUM FERRIC GLUCONATE COMPLEX [Suspect]
     Active Substance: SODIUM FERRIC GLUCONATE COMPLEX
  463. WARFARIN SODIUM [Suspect]
     Active Substance: WARFARIN SODIUM
     Indication: Thrombosis
     Dosage: 2 MILLIGRAM, QD (1 EVERY 1 DAYS)
  464. WARFARIN SODIUM [Suspect]
     Active Substance: WARFARIN SODIUM
  465. ONDANSETRON [Suspect]
     Active Substance: ONDANSETRON
     Indication: Vomiting
     Dosage: 4 MILLIGRAM, QD (1 EVERY 1 DAYS)
  466. ONDANSETRON [Suspect]
     Active Substance: ONDANSETRON
     Indication: Nausea
  467. ONDANSETRON [Suspect]
     Active Substance: ONDANSETRON
  468. ONDANSETRON [Suspect]
     Active Substance: ONDANSETRON
     Dosage: 1 DOSAGE FORM, Q6H
  469. ASCORBIC ACID\PEG-3350\POTASSIUM CHLORIDE\SODIUM (ASCORBATE/CHLORIDE/S [Suspect]
     Active Substance: ASCORBIC ACID\POLYETHYLENE GLYCOL 3350\POTASSIUM CHLORIDE\SODIUM ASCORBATE\SODIUM CHLORIDE\SODIUM SU
     Indication: Constipation
  470. ASCORBIC ACID\PEG-3350\POTASSIUM CHLORIDE\SODIUM (ASCORBATE/CHLORIDE/S [Suspect]
     Active Substance: ASCORBIC ACID\POLYETHYLENE GLYCOL 3350\POTASSIUM CHLORIDE\SODIUM ASCORBATE\SODIUM CHLORIDE\SODIUM SU
     Indication: Nutritional supplementation
     Dosage: 17 MILLIGRAM, QD (1 EVERY 1 DAYS)
  471. ASCORBIC ACID\PEG-3350\POTASSIUM CHLORIDE\SODIUM (ASCORBATE/CHLORIDE/S [Suspect]
     Active Substance: ASCORBIC ACID\POLYETHYLENE GLYCOL 3350\POTASSIUM CHLORIDE\SODIUM ASCORBATE\SODIUM CHLORIDE\SODIUM SU
     Indication: Iron deficiency
     Dosage: UNK, QD (1 EVERY 1 DAYS)
  472. ASCORBIC ACID\PEG-3350\POTASSIUM CHLORIDE\SODIUM (ASCORBATE/CHLORIDE/S [Suspect]
     Active Substance: ASCORBIC ACID\POLYETHYLENE GLYCOL 3350\POTASSIUM CHLORIDE\SODIUM ASCORBATE\SODIUM CHLORIDE\SODIUM SU
     Dosage: 17 MILLIGRAM, QW (1 EVERY 1 WEEKS)
  473. ASCORBIC ACID\PEG-3350\POTASSIUM CHLORIDE\SODIUM (ASCORBATE/CHLORIDE/S [Suspect]
     Active Substance: ASCORBIC ACID\POLYETHYLENE GLYCOL 3350\POTASSIUM CHLORIDE\SODIUM ASCORBATE\SODIUM CHLORIDE\SODIUM SU
  474. ASCORBIC ACID\PEG-3350\POTASSIUM CHLORIDE\SODIUM (ASCORBATE/CHLORIDE/S [Suspect]
     Active Substance: ASCORBIC ACID\POLYETHYLENE GLYCOL 3350\POTASSIUM CHLORIDE\SODIUM ASCORBATE\SODIUM CHLORIDE\SODIUM SU
  475. ASCORBIC ACID\PEG-3350\POTASSIUM CHLORIDE\SODIUM (ASCORBATE/CHLORIDE/S [Suspect]
     Active Substance: ASCORBIC ACID\POLYETHYLENE GLYCOL 3350\POTASSIUM CHLORIDE\SODIUM ASCORBATE\SODIUM CHLORIDE\SODIUM SU
  476. ASCORBIC ACID\PEG-3350\POTASSIUM CHLORIDE\SODIUM (ASCORBATE/CHLORIDE/S [Suspect]
     Active Substance: ASCORBIC ACID\POLYETHYLENE GLYCOL 3350\POTASSIUM CHLORIDE\SODIUM ASCORBATE\SODIUM CHLORIDE\SODIUM SU
  477. ASCORBIC ACID\PEG-3350\POTASSIUM CHLORIDE\SODIUM (ASCORBATE/CHLORIDE/S [Suspect]
     Active Substance: ASCORBIC ACID\POLYETHYLENE GLYCOL 3350\POTASSIUM CHLORIDE\SODIUM ASCORBATE\SODIUM CHLORIDE\SODIUM SU
  478. ASCORBIC ACID\PEG-3350\POTASSIUM CHLORIDE\SODIUM (ASCORBATE/CHLORIDE/S [Suspect]
     Active Substance: ASCORBIC ACID\POLYETHYLENE GLYCOL 3350\POTASSIUM CHLORIDE\SODIUM ASCORBATE\SODIUM CHLORIDE\SODIUM SU
     Dosage: 17 MILLIGRAM, QD (1 EVERY 1 DAYS)
  479. ASCORBIC ACID\PEG-3350\POTASSIUM CHLORIDE\SODIUM (ASCORBATE/CHLORIDE/S [Suspect]
     Active Substance: ASCORBIC ACID\POLYETHYLENE GLYCOL 3350\POTASSIUM CHLORIDE\SODIUM ASCORBATE\SODIUM CHLORIDE\SODIUM SU
  480. ASCORBIC ACID\PEG-3350\POTASSIUM CHLORIDE\SODIUM (ASCORBATE/CHLORIDE/S [Suspect]
     Active Substance: ASCORBIC ACID\POLYETHYLENE GLYCOL 3350\POTASSIUM CHLORIDE\SODIUM ASCORBATE\SODIUM CHLORIDE\SODIUM SU
     Dosage: 17 GRAM, QD (1 EVERY 1 DAYS)
  481. ASCORBIC ACID\PEG-3350\POTASSIUM CHLORIDE\SODIUM (ASCORBATE/CHLORIDE/S [Suspect]
     Active Substance: ASCORBIC ACID\POLYETHYLENE GLYCOL 3350\POTASSIUM CHLORIDE\SODIUM ASCORBATE\SODIUM CHLORIDE\SODIUM SU
     Dosage: 2.5 MILLILITER, QW (1 EVERY 1 WEEKS)
  482. ASCORBIC ACID\PEG-3350\POTASSIUM CHLORIDE\SODIUM (ASCORBATE/CHLORIDE/S [Suspect]
     Active Substance: ASCORBIC ACID\POLYETHYLENE GLYCOL 3350\POTASSIUM CHLORIDE\SODIUM ASCORBATE\SODIUM CHLORIDE\SODIUM SU
     Dosage: UNK, QD (1 EVERY 1 DAYS)
  483. ASCORBIC ACID\PEG-3350\POTASSIUM CHLORIDE\SODIUM (ASCORBATE/CHLORIDE/S [Suspect]
     Active Substance: ASCORBIC ACID\POLYETHYLENE GLYCOL 3350\POTASSIUM CHLORIDE\SODIUM ASCORBATE\SODIUM CHLORIDE\SODIUM SU
     Dosage: 3 MILLIGRAM, QW (1 EVERY 1 WEEKS)
  484. ASCORBIC ACID\PEG-3350\POTASSIUM CHLORIDE\SODIUM (ASCORBATE/CHLORIDE/S [Suspect]
     Active Substance: ASCORBIC ACID\POLYETHYLENE GLYCOL 3350\POTASSIUM CHLORIDE\SODIUM ASCORBATE\SODIUM CHLORIDE\SODIUM SU
  485. ASCORBIC ACID\PEG-3350\POTASSIUM CHLORIDE\SODIUM (ASCORBATE/CHLORIDE/S [Suspect]
     Active Substance: ASCORBIC ACID\POLYETHYLENE GLYCOL 3350\POTASSIUM CHLORIDE\SODIUM ASCORBATE\SODIUM CHLORIDE\SODIUM SU
     Dosage: 17 GRAM, QD (1 EVERY 1 DAYS)
  486. ASCORBIC ACID\PEG-3350\POTASSIUM CHLORIDE\SODIUM (ASCORBATE/CHLORIDE/S [Suspect]
     Active Substance: ASCORBIC ACID\POLYETHYLENE GLYCOL 3350\POTASSIUM CHLORIDE\SODIUM ASCORBATE\SODIUM CHLORIDE\SODIUM SU
     Dosage: 3 MILLIGRAM, QW (1 EVERY 1 WEEKS)
  487. LANTHANUM CARBONATE [Suspect]
     Active Substance: LANTHANUM CARBONATE
     Indication: Hyperphosphataemia
     Dosage: 500 MICROGRAM, QD (1 EVERY 1 DAYS)
  488. LANTHANUM CARBONATE [Suspect]
     Active Substance: LANTHANUM CARBONATE
     Indication: Blood phosphorus increased
  489. LANTHANUM CARBONATE [Suspect]
     Active Substance: LANTHANUM CARBONATE
     Dosage: 500 MILLIGRAM, QD (1 EVERY 1 DAYS)
  490. LANTHANUM CARBONATE [Suspect]
     Active Substance: LANTHANUM CARBONATE
  491. LANTHANUM CARBONATE [Suspect]
     Active Substance: LANTHANUM CARBONATE
     Dosage: 500 MICROGRAM, QD (1 EVERY 1 DAYS)
  492. LANTHANUM CARBONATE [Suspect]
     Active Substance: LANTHANUM CARBONATE
     Dosage: 500 MICROGRAM, Q8H ((1 EVERY 8 HOURS)
  493. LANTHANUM CARBONATE [Suspect]
     Active Substance: LANTHANUM CARBONATE
     Dosage: 550 MILLIGRAM, QD (1 EVERY 1 DAYS)
  494. DISODIUM HYDROGEN CITRATE [Concomitant]
     Active Substance: DISODIUM HYDROGEN CITRATE
  495. POTASSIUM BROMIDE [Suspect]
     Active Substance: POTASSIUM BROMIDE
  496. SODIUM BROMIDE [Suspect]
     Active Substance: SODIUM BROMIDE

REACTIONS (87)
  - Multiple organ dysfunction syndrome [Fatal]
  - Appendicitis [Fatal]
  - Stress [Fatal]
  - Nausea [Fatal]
  - General physical health deterioration [Fatal]
  - Abdominal distension [Fatal]
  - Ascites [Fatal]
  - Constipation [Fatal]
  - Hyponatraemia [Fatal]
  - Vomiting [Fatal]
  - Appendicolith [Fatal]
  - Sepsis [Fatal]
  - Abdominal pain [Fatal]
  - Ventricular fibrillation [Fatal]
  - Blood phosphorus increased [Fatal]
  - Condition aggravated [Fatal]
  - Somnolence [Fatal]
  - Dry mouth [Fatal]
  - Death [Fatal]
  - Cardiogenic shock [Fatal]
  - Myasthenia gravis [Fatal]
  - Blood uric acid increased [Fatal]
  - Blood cholesterol increased [Fatal]
  - Bacterial infection [Fatal]
  - Analgesic therapy [Fatal]
  - Anaemia [Fatal]
  - Chronic obstructive pulmonary disease [Fatal]
  - Diabetes mellitus [Fatal]
  - Neuralgia [Fatal]
  - Swelling [Fatal]
  - Thrombosis [Fatal]
  - Dyspnoea [Fatal]
  - Sleep disorder therapy [Fatal]
  - Drug therapy [Fatal]
  - Pulmonary embolism [Fatal]
  - Sleep disorder [Fatal]
  - Hypophosphataemia [Fatal]
  - Hyperphosphataemia [Fatal]
  - Iron deficiency [Fatal]
  - Drug hypersensitivity [Fatal]
  - Abdominal pain upper [Fatal]
  - Aspiration [Fatal]
  - Asthenia [Fatal]
  - Asthma [Fatal]
  - Blood calcium increased [Fatal]
  - Blood creatinine increased [Fatal]
  - Blood test abnormal [Fatal]
  - Bronchiectasis [Fatal]
  - Bronchopulmonary aspergillosis allergic [Fatal]
  - Cough [Fatal]
  - Fatigue [Fatal]
  - Gastrooesophageal reflux disease [Fatal]
  - Headache [Fatal]
  - Haemoptysis [Fatal]
  - Hypoxia [Fatal]
  - Lower respiratory tract infection [Fatal]
  - Liver function test increased [Fatal]
  - Lung opacity [Fatal]
  - Musculoskeletal stiffness [Fatal]
  - Obstructive airways disorder [Fatal]
  - Oedema peripheral [Fatal]
  - Pain [Fatal]
  - Pleural effusion [Fatal]
  - Pneumonia [Fatal]
  - Rales [Fatal]
  - Pulmonary fibrosis [Fatal]
  - Pulmonary mass [Fatal]
  - Pyrexia [Fatal]
  - Sputum discoloured [Fatal]
  - Upper respiratory tract infection [Fatal]
  - Total lung capacity decreased [Fatal]
  - Transaminases increased [Fatal]
  - Wheezing [Fatal]
  - Tremor [Fatal]
  - Drug intolerance [Fatal]
  - Activated partial thromboplastin time prolonged [Fatal]
  - Aortic stenosis [Fatal]
  - End stage renal disease [Fatal]
  - Gout [Fatal]
  - Hyperlipidaemia [Fatal]
  - Ulcer [Fatal]
  - Product dose omission issue [Fatal]
  - Drug ineffective [Fatal]
  - Product use in unapproved indication [Fatal]
  - Off label use [Fatal]
  - Incorrect route of product administration [Fatal]
  - Intentional product misuse [Fatal]

NARRATIVE: CASE EVENT DATE: 20200601
